FAERS Safety Report 26196294 (Version 1)
Quarter: 2025Q4

REPORT INFORMATION
  Report Type: Report from Study
  Country: GB (occurrence: None)
  Receive Date: 20251224
  Receipt Date: 20251224
  Transmission Date: 20260118
  Serious: Yes (Other)
  Sender: Alvotech
  Company Number: GB-ALVOTECHPMS-2025-ALVOTECHPMS-006124

PATIENT
  Age: 79 Year
  Sex: Female

DRUGS (1)
  1. USTEKINUMAB [Suspect]
     Active Substance: USTEKINUMAB
     Indication: Product used for unknown indication
     Dosage: 45MG/1ML EVERY 84 DAYS
     Route: 058

REACTIONS (3)
  - Unresponsive to stimuli [Unknown]
  - Malaise [Unknown]
  - Somnolence [Unknown]
